FAERS Safety Report 5880081-9 (Version None)
Quarter: 2008Q3

REPORT INFORMATION
  Report Type: 
  Country: None (occurrence: None)
  Receive Date: 20080911
  Receipt Date: 20080911
  Transmission Date: 20090109
  Serious: Yes (Hospitalization)
  Sender: FDA-Public Use
  Company Number: None

PATIENT
  Age: 47 Year
  Sex: Male
  Weight: 107.9561 kg

DRUGS (3)
  1. MYFORTIC [Suspect]
     Indication: IMMUNOSUPPRESSION
     Dosage: 720 MG ORALLY TWICE DAILY
     Route: 048
     Dates: start: 20080717
  2. TACROLIMUS [Concomitant]
  3. PREDNISONE [Concomitant]

REACTIONS (10)
  - ABDOMINAL PAIN LOWER [None]
  - COUGH [None]
  - HYPOPHAGIA [None]
  - MALAISE [None]
  - OROPHARYNGEAL PAIN [None]
  - PYREXIA [None]
  - RETCHING [None]
  - RHINORRHOEA [None]
  - VIRAL INFECTION [None]
  - VOMITING [None]
